APPROVED DRUG PRODUCT: LABETALOL HYDROCHLORIDE
Active Ingredient: LABETALOL HYDROCHLORIDE
Strength: 10MG/2ML (5MG/ML)
Dosage Form/Route: SOLUTION;INTRAVENOUS
Application: N213330 | Product #005
Applicant: HIKMA PHARMACEUTICALS USA INC
Approved: Mar 18, 2022 | RLD: Yes | RS: No | Type: DISCN